FAERS Safety Report 18164567 (Version 1)
Quarter: 2020Q3

REPORT INFORMATION
  Report Type: Spontaneous
  Country: US (occurrence: US)
  Receive Date: 20200818
  Receipt Date: 20200818
  Transmission Date: 20201103
  Serious: Yes (Hospitalization)
  Sender: FDA-Public Use
  Company Number: US-ELI_LILLY_AND_COMPANY-US202008005390

PATIENT
  Sex: Female

DRUGS (1)
  1. VERZENIO [Suspect]
     Active Substance: ABEMACICLIB
     Indication: METASTATIC NEOPLASM
     Dosage: UNK UNK, UNKNOWN
     Route: 048

REACTIONS (1)
  - Mass [Unknown]

NARRATIVE: CASE EVENT DATE: 20190914
